FAERS Safety Report 26106615 (Version 1)
Quarter: 2025Q4

REPORT INFORMATION
  Report Type: Spontaneous
  Country: US (occurrence: US)
  Receive Date: 20251201
  Receipt Date: 20251201
  Transmission Date: 20260118
  Serious: No
  Sender: SANOFI AVENTIS
  Company Number: US-SANOFI-02734824

PATIENT
  Age: 26 Year
  Sex: Male

DRUGS (1)
  1. DUPIXENT [Suspect]
     Active Substance: DUPILUMAB
     Indication: Eczema
     Dosage: 300 MG
     Dates: start: 202511

REACTIONS (5)
  - Eczema [Unknown]
  - Erythema of eyelid [Unknown]
  - Rash erythematous [Unknown]
  - Urticaria [Unknown]
  - Stomatitis [Unknown]

NARRATIVE: CASE EVENT DATE: 20251101
